FAERS Safety Report 9851870 (Version 1)
Quarter: 2014Q1

REPORT INFORMATION
  Report Type: Report from Study
  Country: BR (occurrence: BR)
  Receive Date: 20140129
  Receipt Date: 20140129
  Transmission Date: 20141002
  Serious: Yes (Hospitalization)
  Sender: FDA-Public Use
  Company Number: BR-SA-2014SA007153

PATIENT
  Sex: Male

DRUGS (1)
  1. AGALSIDASE BETA [Suspect]
     Dates: start: 20130717

REACTIONS (4)
  - Schistosomiasis [Unknown]
  - Dysentery [Unknown]
  - Swelling [Unknown]
  - Weight decreased [Unknown]
